FAERS Safety Report 24166585 (Version 1)
Quarter: 2024Q3

REPORT INFORMATION
  Report Type: Spontaneous
  Country: GB (occurrence: GB)
  Receive Date: 20240802
  Receipt Date: 20240802
  Transmission Date: 20241017
  Serious: Yes (Other)
  Sender: TEVA
  Company Number: None

PATIENT
  Age: 87 Year

DRUGS (9)
  1. TRIMETHOPRIM [Suspect]
     Active Substance: TRIMETHOPRIM
     Dosage: 2 COURSES,
     Route: 065
  2. TRIMETHOPRIM [Suspect]
     Active Substance: TRIMETHOPRIM
     Dosage: 2 COURSES,
     Route: 065
  3. SODIUM BICARBONATE [Concomitant]
     Active Substance: SODIUM BICARBONATE
  4. BIMATOPROST\TIMOLOL [Concomitant]
     Active Substance: BIMATOPROST\TIMOLOL
     Dosage: 300 MICROGRAMS / ML / TIMOLOL 5 MG / ML EYE DROPS ONE DROP ONCE DAILY BOTH EYES, TIMOLOL AND BIMA...
     Route: 047
  5. LACTULOSE [Concomitant]
     Active Substance: LACTULOSE
     Dosage: 3.1-3.7 G / 5 ML
     Route: 048
  6. MIRTAZAPINE [Concomitant]
     Active Substance: MIRTAZAPINE
     Dosage: AT NIGHT
  7. SIMVASTATIN [Concomitant]
     Active Substance: SIMVASTATIN
     Dosage: AT NIGHT - TEMP SUSPENSION WHILE AKI, REVIEW ONCE STABLE
  8. BRINZOLAMIDE [Concomitant]
     Active Substance: BRINZOLAMIDE
     Dosage: ONE DROP TO BE USED TWICE A DAY IN BOTH EYES
     Route: 047
  9. FOLIC ACID [Concomitant]
     Active Substance: FOLIC ACID

REACTIONS (2)
  - Acute kidney injury [Unknown]
  - Chronic kidney disease [Unknown]
